FAERS Safety Report 15677394 (Version 2)
Quarter: 2019Q1

REPORT INFORMATION
  Report Type: Report from Study
  Country: BE (occurrence: BE)
  Receive Date: 20181130
  Receipt Date: 20190109
  Transmission Date: 20190417
  Serious: Yes (Hospitalization)
  Sender: FDA-Public Use
  Company Number: BE-PFIZER INC-2018485662

PATIENT
  Age: 61 Year
  Sex: Male
  Weight: 81.5 kg

DRUGS (11)
  1. AVELUMAB [Suspect]
     Active Substance: AVELUMAB
     Indication: GLIOBLASTOMA
     Dosage: 10 MG/KG, EVERY 2 WEEKS
     Dates: start: 20180509, end: 20181107
  2. AXITINIB [Suspect]
     Active Substance: AXITINIB
     Indication: GLIOBLASTOMA
     Dosage: 5 MG, 2X/DAY
     Dates: start: 20180314, end: 20181121
  3. HYDROCORTISONE. [Concomitant]
     Active Substance: HYDROCORTISONE
     Indication: BRAIN OEDEMA
     Dosage: 20 MG, UNK
     Route: 048
     Dates: start: 20180523
  4. PANTOMED [PANTOPRAZOLE SODIUM SESQUIHYDRATE] [Concomitant]
     Indication: GASTROOESOPHAGEAL REFLUX DISEASE
     Dosage: 40 MG, UNK
     Route: 048
     Dates: start: 20180509
  5. LIORESAL [Concomitant]
     Active Substance: BACLOFEN
     Indication: MUSCLE SPASTICITY
     Dosage: 10 MG, UNK
     Route: 048
     Dates: start: 20180718
  6. RAMIPRIL. [Suspect]
     Active Substance: RAMIPRIL
     Indication: HYPERTENSION
     Dosage: 5 MG, UNK
     Route: 048
     Dates: start: 20180509, end: 20181121
  7. TAMSULOSINE [TAMSULOSIN] [Concomitant]
     Indication: BENIGN PROSTATIC HYPERPLASIA
     Dosage: 0.4 MG, UNK
     Route: 048
     Dates: start: 20180718
  8. BETMIGA [Concomitant]
     Active Substance: MIRABEGRON
     Indication: BENIGN PROSTATIC HYPERPLASIA
     Dosage: 50 MG, UNK
     Route: 048
     Dates: start: 20180411
  9. CO-BISOPROLOL [Suspect]
     Active Substance: BISOPROLOL FUMARATE\HYDROCHLOROTHIAZIDE
     Indication: HYPERTENSION
     Dosage: 10/25 MG, UNK (START WITH, SWITCHED TO BISOPROLOL ONLY)
     Route: 048
     Dates: start: 20180523, end: 20181121
  10. DEPAKINE [VALPROIC ACID] [Concomitant]
     Active Substance: VALPROIC ACID
     Indication: SEIZURE
     Dosage: 300 MG, UNK
     Route: 048
     Dates: start: 20181010
  11. BISOPROLOL MYLAN [Concomitant]
     Active Substance: BISOPROLOL
     Indication: HYPERTENSION
     Dosage: 10 MG, UNK
     Route: 048
     Dates: start: 20181122

REACTIONS (1)
  - Acute kidney injury [Recovered/Resolved]

NARRATIVE: CASE EVENT DATE: 20181121
